FAERS Safety Report 5755888-9 (Version None)
Quarter: 2008Q2

REPORT INFORMATION
  Report Type: 
  Country: None (occurrence: None)
  Receive Date: 20080528
  Receipt Date: 20080522
  Transmission Date: 20081010
  Serious: Yes (Hospitalization, Other)
  Sender: FDA-Public Use
  Company Number: 2008001125

PATIENT
  Age: 67 Year
  Sex: Male

DRUGS (1)
  1. TARCEVA [Suspect]
     Indication: LUNG NEOPLASM MALIGNANT
     Dosage: 150 MG, OD, ORAL
     Route: 048
     Dates: start: 20080225

REACTIONS (4)
  - CROSS INFECTION [None]
  - DIARRHOEA [None]
  - RASH [None]
  - RESPIRATORY FAILURE [None]
